FAERS Safety Report 7804859-7 (Version None)
Quarter: 2011Q4

REPORT INFORMATION
  Report Type: 
  Country: None (occurrence: None)
  Receive Date: 20111010
  Receipt Date: 20111004
  Transmission Date: 20120403
  Serious: Yes (Other)
  Sender: FDA-Public Use
  Company Number: US-ABBOTT-11P-163-0854821-00

PATIENT
  Sex: Male
  Weight: 108.96 kg

DRUGS (3)
  1. OMEPRAZOLE [Concomitant]
     Indication: PRODUCT USED FOR UNKNOWN INDICATION
  2. MELOXICAM [Concomitant]
     Indication: PRODUCT USED FOR UNKNOWN INDICATION
  3. HUMIRA [Suspect]
     Indication: ANKYLOSING SPONDYLITIS
     Dates: start: 20110818, end: 20110901

REACTIONS (6)
  - ANAPHYLACTIC SHOCK [None]
  - HYPOAESTHESIA [None]
  - DYSPNOEA [None]
  - LETHARGY [None]
  - HYPERHIDROSIS [None]
  - STRIDOR [None]
